FAERS Safety Report 15605691 (Version 1)
Quarter: 2018Q4

REPORT INFORMATION
  Report Type: Spontaneous
  Country: SE (occurrence: SE)
  Receive Date: 20181112
  Receipt Date: 20181112
  Transmission Date: 20190205
  Serious: Yes (Other)
  Sender: FDA-Public Use
  Company Number: SE-ACCORD-091982

PATIENT
  Age: 53 Year
  Sex: Male

DRUGS (2)
  1. REMICADE [Suspect]
     Active Substance: INFLIXIMAB
     Indication: ANKYLOSING SPONDYLITIS
  2. METHOTREXATE. [Suspect]
     Active Substance: METHOTREXATE
     Indication: ANKYLOSING SPONDYLITIS

REACTIONS (1)
  - Impaired healing [Unknown]

NARRATIVE: CASE EVENT DATE: 20180315
